FAERS Safety Report 26152518 (Version 2)
Quarter: 2025Q4

REPORT INFORMATION
  Report Type: Spontaneous
  Country: JP (occurrence: JP)
  Receive Date: 20251214
  Receipt Date: 20251223
  Transmission Date: 20260118
  Serious: Yes (Hospitalization)
  Sender: ASTELLAS
  Company Number: JP-ASTELLAS-2025-AER-064087

PATIENT
  Age: 8 Decade
  Sex: Male

DRUGS (2)
  1. PADCEV [Suspect]
     Active Substance: ENFORTUMAB VEDOTIN-EJFV
     Indication: Transitional cell carcinoma
     Dosage: ONCE WEEKLY FOR TWO CONSECUTIVE WEEKS, WITH INTERRUPTION AT WEEK 3
     Route: 042
  2. PEMBROLIZUMAB [Suspect]
     Active Substance: PEMBROLIZUMAB
     Indication: Transitional cell carcinoma
     Route: 042

REACTIONS (3)
  - Febrile neutropenia [Recovered/Resolved]
  - Toxic epidermal necrolysis [Recovered/Resolved]
  - Hyperglycaemia [Recovered/Resolved]
